FAERS Safety Report 9281109 (Version 1)
Quarter: 2013Q2

REPORT INFORMATION
  Report Type: Spontaneous
  Country: US (occurrence: US)
  Receive Date: 20130509
  Receipt Date: 20130509
  Transmission Date: 20140414
  Serious: No
  Sender: FDA-Public Use
  Company Number: US-PFIZER INC-2013144042

PATIENT
  Age: 50 Year
  Sex: Female

DRUGS (3)
  1. DILANTIN [Suspect]
     Indication: CONVULSION
     Dosage: 300 MG, 2X/DAY
     Dates: end: 20130506
  2. PROVENTIL HFA [Concomitant]
     Indication: ASTHMA
     Dosage: TWO PUFFS, AS NEEDED
  3. ALBUTEROL SULFATE [Concomitant]
     Indication: ASTHMA
     Dosage: ONE VIAL, AS NEEDED

REACTIONS (1)
  - Headache [Not Recovered/Not Resolved]
